FAERS Safety Report 16927137 (Version 1)
Quarter: 2019Q4

REPORT INFORMATION
  Report Type: Spontaneous
  Country: GB (occurrence: GB)
  Receive Date: 20191016
  Receipt Date: 20191016
  Transmission Date: 20200122
  Serious: Yes (Other)
  Sender: FDA-Public Use
  Company Number: GB-ASCEND THERAPEUTICS US, LLC-2075751

PATIENT
  Age: 47 Year
  Sex: Male

DRUGS (1)
  1. ESTROGEL [Suspect]
     Active Substance: ESTRADIOL
     Indication: PRODUCT USED FOR UNKNOWN INDICATION
     Route: 003
     Dates: start: 201611

REACTIONS (4)
  - Fatigue [Recovered/Resolved]
  - Libido decreased [Recovered/Resolved]
  - Erectile dysfunction [Recovered/Resolved]
  - Exposure via partner [Unknown]

NARRATIVE: CASE EVENT DATE: 201908
